FAERS Safety Report 13268696 (Version 1)
Quarter: 2017Q1

REPORT INFORMATION
  Report Type: Spontaneous
  Country: IE (occurrence: IE)
  Receive Date: 20170224
  Receipt Date: 20170224
  Transmission Date: 20170428
  Serious: Yes (Hospitalization)
  Sender: FDA-Public Use
  Company Number: IE-TEVA-740875ACC

PATIENT
  Age: 52 Year
  Sex: Male

DRUGS (8)
  1. LIPANTIL SUPRA [Suspect]
     Active Substance: FENOFIBRATE
     Indication: HYPERCHOLESTEROLAEMIA
     Route: 048
     Dates: start: 20150815, end: 20151005
  2. LIPANTIL SUPRA [Suspect]
     Active Substance: FENOFIBRATE
     Indication: TYPE 2 DIABETES MELLITUS
  3. METFORMIN BLUEFISH [Suspect]
     Active Substance: METFORMIN HYDROCHLORIDE
     Indication: TYPE 2 DIABETES MELLITUS
     Route: 048
     Dates: start: 201507, end: 20151005
  4. PRIADEL [Concomitant]
     Active Substance: LITHIUM CARBONATE
     Indication: BIPOLAR DISORDER
     Route: 048
  5. ROSUVASTATIN ACTAVIS [Suspect]
     Active Substance: ROSUVASTATIN
     Indication: HYPERCHOLESTEROLAEMIA
     Route: 048
     Dates: start: 201506, end: 20151005
  6. LIPANTIL SUPRA [Suspect]
     Active Substance: FENOFIBRATE
     Indication: HYPERTENSION
  7. PERINDOPRIL (G) [Suspect]
     Active Substance: PERINDOPRIL
     Indication: HYPERTENSION
     Route: 048
     Dates: start: 201507, end: 20151005
  8. NU-SEALS 75 MG GASTRO-RESISTANT TABLETS [Concomitant]
     Indication: PROPHYLAXIS
     Route: 048

REACTIONS (5)
  - Fatigue [Recovering/Resolving]
  - Chromaturia [Recovering/Resolving]
  - Tubulointerstitial nephritis [Recovering/Resolving]
  - Nocturia [Recovering/Resolving]
  - Asthenia [Recovering/Resolving]

NARRATIVE: CASE EVENT DATE: 201508
